FAERS Safety Report 5466899-5 (Version None)
Quarter: 2007Q3

REPORT INFORMATION
  Report Type: 
  Country: None (occurrence: None)
  Receive Date: 20070925
  Receipt Date: 20070914
  Transmission Date: 20080115
  Serious: Yes (Hospitalization)
  Sender: FDA-Public Use
  Company Number: IE-AMGEN-UK243767

PATIENT
  Sex: Male

DRUGS (4)
  1. PANITUMUMAB [Suspect]
     Indication: COLORECTAL CANCER
     Route: 042
     Dates: start: 20070828
  2. IRINOTECAN HCL [Suspect]
  3. LEUCOVORIN [Suspect]
  4. FLUOROURACIL [Suspect]

REACTIONS (3)
  - DEHYDRATION [None]
  - DIARRHOEA [None]
  - NAUSEA [None]
